FAERS Safety Report 4312597-0 (Version None)
Quarter: 2004Q1

REPORT INFORMATION
  Report Type: 
  Country: None (occurrence: None)
  Receive Date: 20040224
  Receipt Date: 20040209
  Transmission Date: 20041129
  Serious: No
  Sender: FDA-Public Use
  Company Number: CART-10241

PATIENT
  Age: 54 Year
  Sex: Male

DRUGS (1)
  1. CARTICEL [Suspect]
     Indication: ARTHROPATHY
     Dosage: 1 NA ONCE IS
     Dates: start: 19980107, end: 19980107

REACTIONS (8)
  - BACTERIAL INFECTION [None]
  - CHONDROCALCINOSIS PYROPHOSPHATE [None]
  - GRAFT COMPLICATION [None]
  - JOINT EFFUSION [None]
  - JOINT INJURY [None]
  - POST PROCEDURAL COMPLICATION [None]
  - TOOTH ABSCESS [None]
  - TRANSPLANT FAILURE [None]
